FAERS Safety Report 18293561 (Version 2)
Quarter: 2021Q3

REPORT INFORMATION
  Report Type: Other
  Country: US (occurrence: US)
  Receive Date: 20200921
  Receipt Date: 20210921
  Transmission Date: 20211014
  Serious: No
  Sender: FDA-Public Use
  Company Number: US-ACORDA-ACO_165789_2020

PATIENT
  Age: 47 Year
  Sex: Female

DRUGS (3)
  1. CARBIDOPA/LEVODOPA [Concomitant]
     Active Substance: CARBIDOPA\LEVODOPA
     Indication: PRODUCT USED FOR UNKNOWN INDICATION
     Dosage: UNK
     Route: 065
  2. INBRIJA [Suspect]
     Active Substance: LEVODOPA
     Indication: PARKINSON^S DISEASE
  3. INBRIJA [Suspect]
     Active Substance: LEVODOPA
     Indication: ON AND OFF PHENOMENON
     Dosage: 84 MILLIGRAM, AS NEEDED (NOT TO EXCEED 5 DOSES A DAY)
     Dates: start: 202005

REACTIONS (8)
  - Weight decreased [Not Recovered/Not Resolved]
  - Product residue present [Unknown]
  - Device occlusion [Unknown]
  - Cough [Unknown]
  - Dyskinesia [Not Recovered/Not Resolved]
  - Nasal discharge discolouration [Unknown]
  - Nasal discomfort [Unknown]
  - Device issue [Unknown]

NARRATIVE: CASE EVENT DATE: 20210916
